FAERS Safety Report 8295769-2 (Version None)
Quarter: 2012Q2

REPORT INFORMATION
  Report Type: 
  Country: None (occurrence: None)
  Receive Date: 20120418
  Receipt Date: 20120411
  Transmission Date: 20120825
  Serious: Yes (Hospitalization)
  Sender: FDA-Public Use
  Company Number: US-US-EMD SERONO, INC.-7125876

PATIENT
  Sex: Female

DRUGS (1)
  1. REBIF [Suspect]
     Indication: PRODUCT USED FOR UNKNOWN INDICATION
     Route: 058
     Dates: start: 20120130, end: 20120315

REACTIONS (5)
  - TWIN PREGNANCY [None]
  - ANXIETY [None]
  - DEPRESSION [None]
  - STRESS [None]
  - MATERNAL EXPOSURE DURING PREGNANCY [None]
